FAERS Safety Report 7240372-6 (Version None)
Quarter: 2011Q1

REPORT INFORMATION
  Report Type: 
  Country: None (occurrence: None)
  Receive Date: 20110124
  Receipt Date: 20110114
  Transmission Date: 20110831
  Serious: Yes (Other)
  Sender: FDA-Public Use
  Company Number: FR-CELGENEUS-056-21880-11012033

PATIENT
  Sex: Male

DRUGS (9)
  1. REVLIMID [Suspect]
     Indication: MULTIPLE MYELOMA
     Route: 048
     Dates: start: 20080418
  2. OXYCODONE HCL [Concomitant]
     Route: 065
     Dates: start: 20060628
  3. PARACETAMOL [Concomitant]
     Indication: PAIN
     Route: 065
     Dates: start: 20060601
  4. ORACILLINE [Concomitant]
     Indication: PROPHYLAXIS
     Route: 065
     Dates: start: 20060720
  5. ZELITREX [Concomitant]
     Indication: PROPHYLAXIS
     Route: 065
     Dates: start: 20060720
  6. BACTRIM [Concomitant]
     Indication: INFECTION PROPHYLAXIS
     Route: 065
     Dates: start: 20070901
  7. RIVOTRIL [Concomitant]
     Route: 065
     Dates: start: 20061228
  8. OMEPRAZOLE [Concomitant]
     Indication: GASTRITIS PROPHYLAXIS
     Route: 065
     Dates: start: 20060720
  9. LYRICA [Concomitant]
     Indication: PROPHYLAXIS
     Route: 065
     Dates: start: 20070206

REACTIONS (1)
  - BASAL CELL CARCINOMA [None]
